FAERS Safety Report 10256425 (Version 2)
Quarter: 2014Q3

REPORT INFORMATION
  Report Type: Spontaneous
  Country: IT (occurrence: IT)
  Receive Date: 20140624
  Receipt Date: 20140930
  Transmission Date: 20150326
  Serious: Yes (Other)
  Sender: FDA-Public Use
  Company Number: IT-B.I. PHARMACEUTICALS,INC./RIDGEFIELD-2014-BI-27772IT

PATIENT
  Age: 67 Year
  Sex: Female
  Weight: 99 kg

DRUGS (3)
  1. TACHIFLUDEC [Suspect]
     Active Substance: ACETAMINOPHEN\ASCORBIC ACID\PHENYLEPHRINE
     Indication: NASOPHARYNGITIS
     Dosage: FORMULATION: POWDER FOR ORAL SOLUTION,SOLUTION 3 UNITS DAILY
     Route: 048
     Dates: start: 20140427, end: 20140429
  2. SINECOD TOSSE FLUIDIFICANTE [Suspect]
     Active Substance: CARBOCYSTEINE
     Indication: COUGH
     Dosage: 50 MG/ML AT A DAILY DOSE OF 45 ML
     Route: 048
     Dates: start: 20140427, end: 20140429
  3. MICARDIS PLUS [Suspect]
     Active Substance: HYDROCHLOROTHIAZIDE\TELMISARTAN
     Indication: HYPERTENSION
     Dosage: 80/12.5, ONE TABLET DAILY
     Route: 048
     Dates: start: 20130101, end: 20140429

REACTIONS (3)
  - Dyspnoea [Not Recovered/Not Resolved]
  - Pharyngeal oedema [Not Recovered/Not Resolved]
  - Angioedema [Not Recovered/Not Resolved]

NARRATIVE: CASE EVENT DATE: 20140429
